FAERS Safety Report 9551063 (Version 2)
Quarter: 2013Q3

REPORT INFORMATION
  Report Type: Spontaneous
  Country: US (occurrence: US)
  Receive Date: 20130925
  Receipt Date: 20130925
  Transmission Date: 20140515
  Serious: Yes (Other)
  Sender: FDA-Public Use
  Company Number: US-AMGEN-USASP2013018850

PATIENT
  Sex: Female

DRUGS (1)
  1. PROCRIT [Suspect]
     Indication: ANAEMIA OF MALIGNANT DISEASE
     Dosage: UNK, TWICE
     Route: 065
     Dates: start: 201302

REACTIONS (2)
  - Blood pressure increased [Not Recovered/Not Resolved]
  - Labile blood pressure [Not Recovered/Not Resolved]
